FAERS Safety Report 18925900 (Version 1)
Quarter: 2021Q1

REPORT INFORMATION
  Report Type: Spontaneous
  Country: GB (occurrence: GB)
  Receive Date: 20210223
  Receipt Date: 20210223
  Transmission Date: 20210420
  Serious: Yes (Hospitalization, Other)
  Sender: FDA-Public Use
  Company Number: GB-AMGEN-GBRSP2021026771

PATIENT
  Age: 69 Year
  Sex: Male
  Weight: 80.6 kg

DRUGS (15)
  1. DOXYCYCLINE. [Concomitant]
     Active Substance: DOXYCYCLINE
     Dosage: UNK
     Dates: start: 20150810
  2. PARACETAMOL [Concomitant]
     Active Substance: ACETAMINOPHEN
     Dosage: UNK
     Dates: start: 20210113
  3. ATORVASTATIN [Concomitant]
     Active Substance: ATORVASTATIN
     Dosage: UNK
     Route: 065
     Dates: start: 20150810
  4. GABAPENTIN. [Concomitant]
     Active Substance: GABAPENTIN
     Dosage: UNK
     Dates: start: 20171031
  5. ATARAX [ALPRAZOLAM] [Concomitant]
     Active Substance: ALPRAZOLAM
     Dosage: UNK
     Dates: start: 20150824
  6. FUROSEMIDE. [Concomitant]
     Active Substance: FUROSEMIDE
     Dosage: UNK
     Dates: start: 20150824
  7. DOCUSATE SODIUM. [Concomitant]
     Active Substance: DOCUSATE SODIUM
     Dosage: UNK
     Dates: start: 20210113
  8. AMGEVITA [Suspect]
     Active Substance: ADALIMUMAB
     Indication: PSORIASIS
     Dosage: 40 MILLIGRAM, Q2WK
     Route: 065
     Dates: start: 20191122
  9. AMLODIPINE [Concomitant]
     Active Substance: AMLODIPINE BESYLATE
     Dosage: UNK
     Route: 065
     Dates: start: 20150810
  10. ENALAPRIL [Concomitant]
     Active Substance: ENALAPRIL
     Dosage: UNK
     Dates: start: 20150810
  11. SENNA GLYCOSIDES [Concomitant]
     Active Substance: HERBALS\SENNOSIDES
     Dosage: UNK
     Dates: start: 20210113
  12. INDAPAMID [Concomitant]
     Active Substance: INDAPAMIDE
     Dosage: UNK
     Route: 065
     Dates: start: 20150810
  13. CODEINE [Concomitant]
     Active Substance: CODEINE
     Dosage: UNK
     Dates: start: 20210113
  14. OMEPRAZOLE. [Concomitant]
     Active Substance: OMEPRAZOLE
     Dosage: UNK
     Dates: start: 20150810
  15. IBUPROFEN. [Concomitant]
     Active Substance: IBUPROFEN
     Dosage: UNK
     Dates: start: 20210113

REACTIONS (3)
  - Arteriosclerosis coronary artery [Recovered/Resolved with Sequelae]
  - Diastolic dysfunction [Recovered/Resolved with Sequelae]
  - Spinal decompression [Recovered/Resolved with Sequelae]

NARRATIVE: CASE EVENT DATE: 20210112
